FAERS Safety Report 9139012 (Version 3)
Quarter: 2015Q1

REPORT INFORMATION
  Report Type: Spontaneous
  Country: US (occurrence: US)
  Receive Date: 20130305
  Receipt Date: 20150213
  Transmission Date: 20150721
  Serious: Yes (Other)
  Sender: FDA-Public Use
  Company Number: US-ELI_LILLY_AND_COMPANY-US201302008259

PATIENT
  Age: 39 Year
  Sex: Female

DRUGS (7)
  1. DEPAKOTE [Concomitant]
     Active Substance: DIVALPROEX SODIUM
  2. PROZAC [Concomitant]
     Active Substance: FLUOXETINE HYDROCHLORIDE
  3. COGENTIN [Concomitant]
     Active Substance: BENZTROPINE MESYLATE
  4. PERPHENAZIN [Concomitant]
     Dosage: 4 MG, UNK
  5. ZYPREXA [Suspect]
     Active Substance: OLANZAPINE
     Indication: SCHIZOPHRENIA
     Dosage: UNK UNK, UNKNOWN
     Dates: start: 19970716, end: 20000921
  6. PROPULSID [Concomitant]
     Active Substance: CISAPRIDE
  7. RISPERDAL [Concomitant]
     Active Substance: RISPERIDONE
     Dosage: 1 MG, UNK

REACTIONS (8)
  - Pain in extremity [Unknown]
  - Glucose tolerance impaired [Not Recovered/Not Resolved]
  - Cutis laxa [Not Recovered/Not Resolved]
  - Weight increased [Recovered/Resolved with Sequelae]
  - Back pain [Unknown]
  - Hyperlipidaemia [Not Recovered/Not Resolved]
  - Ligament rupture [Unknown]
  - Somnolence [Not Recovered/Not Resolved]

NARRATIVE: CASE EVENT DATE: 2000
